FAERS Safety Report 6330886-5 (Version None)
Quarter: 2009Q3

REPORT INFORMATION
  Report Type: 
  Country: None (occurrence: None)
  Receive Date: 20090827
  Receipt Date: 20090819
  Transmission Date: 20100115
  Serious: Yes (Hospitalization, Other)
  Sender: FDA-Public Use
  Company Number: DE-AMGEN-UK359566

PATIENT
  Sex: Female
  Weight: 81 kg

DRUGS (2)
  1. NEULASTA [Suspect]
     Indication: CHEMOTHERAPY
     Route: 065
     Dates: start: 20090315
  2. EPIRUBICIN [Suspect]
     Route: 042
     Dates: start: 20090313, end: 20090313

REACTIONS (4)
  - DRUG INEFFECTIVE [None]
  - FEBRILE INFECTION [None]
  - FEBRILE NEUTROPENIA [None]
  - NAUSEA [None]
